FAERS Safety Report 4894740-8 (Version None)
Quarter: 2006Q1

REPORT INFORMATION
  Report Type: 
  Country: None (occurrence: None)
  Receive Date: 20060127
  Receipt Date: 20060127
  Transmission Date: 20060701
  Serious: Yes (Hospitalization)
  Sender: FDA-Public Use
  Company Number: None

PATIENT
  Sex: Female

DRUGS (4)
  1. RILUTEK [Suspect]
     Indication: SPINAL MUSCULAR ATROPHY
     Dosage: 35 MG   DAILY   OTHER
     Route: 050
     Dates: start: 20051208, end: 20051216
  2. ACETOMINOPHEN [Concomitant]
  3. ALBUTEROL SULFATE AUTOHALER [Concomitant]
  4. IBRUPROFEN [Concomitant]

REACTIONS (4)
  - ATELECTASIS [None]
  - PNEUMONIA RESPIRATORY SYNCYTIAL VIRAL [None]
  - RESPIRATORY DISTRESS [None]
  - THERAPY NON-RESPONDER [None]
